FAERS Safety Report 8370910-1 (Version None)
Quarter: 2012Q2

REPORT INFORMATION
  Report Type: 
  Country: None (occurrence: None)
  Receive Date: 20120518
  Receipt Date: 20120509
  Transmission Date: 20120825
  Serious: Yes (Hospitalization)
  Sender: FDA-Public Use
  Company Number: US-ASTRAZENECA-2012SE29910

PATIENT
  Age: 60 Year
  Sex: Female

DRUGS (5)
  1. SYMBICORT [Suspect]
     Indication: ASTHMA
     Dosage: 160/4.5 2 PUFFS BID
     Route: 055
     Dates: start: 20070101, end: 20120201
  2. SYMBICORT [Suspect]
     Indication: CHRONIC OBSTRUCTIVE PULMONARY DISEASE
     Dosage: 160/4.5 2 PUFFS BID
     Route: 055
     Dates: start: 20070101, end: 20120201
  3. VENTOLIN [Concomitant]
  4. SYMBICORT [Suspect]
     Dosage: 320 BID
     Route: 055
     Dates: start: 20120301
  5. SYMBICORT [Suspect]
     Dosage: 320 BID
     Route: 055
     Dates: start: 20120301

REACTIONS (6)
  - PNEUMONIA [None]
  - OFF LABEL USE [None]
  - DYSPNOEA [None]
  - BRONCHITIS [None]
  - INTENTIONAL DRUG MISUSE [None]
  - CHRONIC OBSTRUCTIVE PULMONARY DISEASE [None]
